FAERS Safety Report 22305810 (Version 1)
Quarter: 2023Q2

REPORT INFORMATION
  Report Type: Other
  Country: IT (occurrence: IT)
  Receive Date: 20230511
  Receipt Date: 20230511
  Transmission Date: 20230722
  Serious: Yes (Other)
  Sender: FDA-Public Use
  Company Number: None

PATIENT
  Age: 23 Year
  Sex: Male

DRUGS (2)
  1. IBUPROFEN [Suspect]
     Active Substance: IBUPROFEN
     Indication: Gingival pain
     Dosage: 1 BRUFEN 600
     Route: 065
     Dates: start: 20230306, end: 20230307
  2. KETOPROFEN LYSINE [Suspect]
     Active Substance: KETOPROFEN LYSINE
     Indication: Product used for unknown indication
     Dosage: 4 OKI AT NIGHT
     Route: 065
     Dates: start: 20230306, end: 20230307

REACTIONS (1)
  - Rectal haemorrhage [Recovered/Resolved]

NARRATIVE: CASE EVENT DATE: 20230306
